FAERS Safety Report 8313324-2 (Version None)
Quarter: 2012Q2

REPORT INFORMATION
  Report Type: 
  Country: None (occurrence: None)
  Receive Date: 20120426
  Receipt Date: 20120417
  Transmission Date: 20120825
  Serious: Yes (Other)
  Sender: FDA-Public Use
  Company Number: PHHY2012BR034013

PATIENT
  Sex: Female

DRUGS (3)
  1. CABERGOLINE [Concomitant]
     Dosage: 5 MG, QW3
  2. SANDOSTATIN LAR [Suspect]
  3. CABERGOLINE [Concomitant]
     Dosage: 5 MG, QW2

REACTIONS (10)
  - HORMONE LEVEL ABNORMAL [None]
  - FALL [None]
  - MALAISE [None]
  - INSOMNIA [None]
  - CONSTIPATION [None]
  - PAIN [None]
  - BLOOD IMMUNOGLOBULIN G DECREASED [None]
  - LABORATORY TEST ABNORMAL [None]
  - FEMUR FRACTURE [None]
  - BLOOD GROWTH HORMONE DECREASED [None]
